FAERS Safety Report 17297885 (Version 2)
Quarter: 2020Q1

REPORT INFORMATION
  Report Type: Spontaneous
  Country: US (occurrence: US)
  Receive Date: 20200122
  Receipt Date: 20200210
  Transmission Date: 20200409
  Serious: Yes (Hospitalization)
  Sender: FDA-Public Use
  Company Number: US-STRIDES ARCOLAB LIMITED-2020SP000546

PATIENT
  Age: 25 Year
  Sex: Male

DRUGS (1)
  1. OSELTAMIVIR [Suspect]
     Active Substance: OSELTAMIVIR
     Indication: INFLUENZA
     Dosage: 1 DOSAGE FORM, BID (CAPSULE)
     Route: 065
     Dates: start: 20200103, end: 20200105

REACTIONS (4)
  - Hallucination [Unknown]
  - Irritability [Recovered/Resolved]
  - Aggression [Recovered/Resolved]
  - Malaise [Not Recovered/Not Resolved]
